FAERS Safety Report 4468413-X (Version None)
Quarter: 2004Q4

REPORT INFORMATION
  Report Type: 
  Country: None (occurrence: None)
  Receive Date: 20041007
  Receipt Date: 20041001
  Transmission Date: 20050328
  Serious: Yes (Other)
  Sender: FDA-Public Use
  Company Number: PHEH2004US10628

PATIENT
  Sex: Male

DRUGS (7)
  1. LAMISIL [Suspect]
     Indication: NAIL TINEA
     Dosage: 250 MG, QD
     Route: 048
     Dates: start: 20040907, end: 20040930
  2. ALLOPURINOL [Concomitant]
  3. ARTHROTEC [Concomitant]
  4. LIPITOR [Concomitant]
  5. IBUPROFEN [Concomitant]
  6. PROCARDIA [Concomitant]
  7. PRILOSEC [Concomitant]

REACTIONS (7)
  - ANAL DISCOMFORT [None]
  - ANORECTAL DISORDER [None]
  - ANORECTAL INFECTION BACTERIAL [None]
  - GASTROINTESTINAL DISORDER [None]
  - HERPES SIMPLEX [None]
  - PROCTALGIA [None]
  - STREPTOCOCCAL INFECTION [None]
